FAERS Safety Report 24020985 (Version 1)
Quarter: 2024Q2

REPORT INFORMATION
  Report Type: Spontaneous
  Country: US (occurrence: US)
  Receive Date: 20240627
  Receipt Date: 20240627
  Transmission Date: 20240715
  Serious: No
  Sender: FDA-Public Use
  Company Number: US-MYLANLABS-2023M1116075

PATIENT
  Sex: Male
  Weight: 108.86 kg

DRUGS (2)
  1. FENTANYL TRANSDERMAL SYSTEM [Suspect]
     Active Substance: FENTANYL
     Indication: Product used for unknown indication
     Dosage: 25 MICROGRAM, QH
     Route: 062
  2. FLOMAX [Concomitant]
     Active Substance: TAMSULOSIN HYDROCHLORIDE
     Dosage: UNK
     Route: 065

REACTIONS (6)
  - Skin irritation [Unknown]
  - Application site discolouration [Unknown]
  - Pruritus [Unknown]
  - Erythema [Unknown]
  - Product adhesion issue [Unknown]
  - Product quality issue [Unknown]
